FAERS Safety Report 5746755-5 (Version None)
Quarter: 2008Q2

REPORT INFORMATION
  Report Type: 
  Country: None (occurrence: None)
  Receive Date: 20080520
  Receipt Date: 20080507
  Transmission Date: 20081010
  Serious: Yes (Death)
  Sender: FDA-Public Use
  Company Number: A-CH2008-19982

PATIENT
  Age: 2 Year
  Sex: Male
  Weight: 10 kg

DRUGS (2)
  1. TRACLEER [Suspect]
     Indication: PULMONARY ARTERIAL HYPERTENSION
     Dosage: 31.25 MG,  ORAL
     Route: 048
     Dates: start: 20080121, end: 20080304
  2. SILDENAFIL TABLET [Concomitant]

REACTIONS (3)
  - CARDIAC FAILURE [None]
  - DIASTOLIC DYSFUNCTION [None]
  - SUPRAVENTRICULAR TACHYCARDIA [None]
